FAERS Safety Report 15402198 (Version 1)
Quarter: 2018Q4

REPORT INFORMATION
  Report Type: Spontaneous
  Country: MX (occurrence: MX)
  Receive Date: 20180919
  Receipt Date: 20180919
  Transmission Date: 20190204
  Serious: Yes (Other)
  Sender: FDA-Public Use
  Company Number: MX-PFIZER INC-2018376691

PATIENT

DRUGS (2)
  1. AZITROCIN [Suspect]
     Active Substance: AZITHROMYCIN
     Indication: RESPIRATORY TRACT INFECTION
     Dosage: 500 MG, UNK
  2. FLANAX NAPROXEN [Suspect]
     Active Substance: NAPROXEN
     Dosage: UNK

REACTIONS (4)
  - Glossitis [Unknown]
  - Eyelid oedema [Unknown]
  - Rash [Unknown]
  - Poisoning [Unknown]
